FAERS Safety Report 26021837 (Version 2)
Quarter: 2025Q4

REPORT INFORMATION
  Report Type: Spontaneous
  Country: US (occurrence: US)
  Receive Date: 20251110
  Receipt Date: 20251125
  Transmission Date: 20260117
  Serious: No
  Sender: SANOFI AVENTIS
  Company Number: US-SA-2025SA325075

PATIENT
  Age: 30 Year
  Sex: Female
  Weight: 86.18 kg

DRUGS (1)
  1. WAYRILZ [Suspect]
     Active Substance: RILZABRUTINIB
     Indication: Thrombocytopenia
     Dosage: 400 MG, BID
     Route: 048
     Dates: start: 20251008

REACTIONS (2)
  - Abdominal discomfort [Unknown]
  - Rash [Not Recovered/Not Resolved]

NARRATIVE: CASE EVENT DATE: 20250101
